FAERS Safety Report 16836002 (Version 2)
Quarter: 2019Q3

REPORT INFORMATION
  Report Type: Report from Study
  Country: BD (occurrence: BD)
  Receive Date: 20190920
  Receipt Date: 20190930
  Transmission Date: 20191005
  Serious: Yes (Death)
  Sender: FDA-Public Use
  Company Number: PHHY2019BD219062

PATIENT
  Age: 61 Year
  Sex: Male

DRUGS (1)
  1. VOTRIENT [Suspect]
     Active Substance: PAZOPANIB HYDROCHLORIDE
     Indication: SARCOMA METASTATIC
     Dosage: 200 MG TABLETS 4 DAILY
     Route: 048
     Dates: start: 201905, end: 20190622

REACTIONS (3)
  - Malignant neoplasm progression [Fatal]
  - Sarcoma metastatic [Fatal]
  - Drug ineffective [Unknown]

NARRATIVE: CASE EVENT DATE: 20190708
